FAERS Safety Report 8408170-5 (Version None)
Quarter: 2012Q2

REPORT INFORMATION
  Report Type: 
  Country: None (occurrence: None)
  Receive Date: 20120604
  Receipt Date: 20120530
  Transmission Date: 20120825
  Serious: Yes (Other)
  Sender: FDA-Public Use
  Company Number: US-PFIZER INC-2012131268

PATIENT
  Age: 77 Year
  Sex: Female

DRUGS (1)
  1. ATORVASTATIN CALCIUM [Suspect]
     Dosage: UNK
     Dates: start: 20120101, end: 20120101

REACTIONS (4)
  - CONSTIPATION [None]
  - MYOCARDIAL INFARCTION [None]
  - HYPOAESTHESIA [None]
  - FATIGUE [None]
